FAERS Safety Report 5248815-4 (Version None)
Quarter: 2007Q1

REPORT INFORMATION
  Report Type: 
  Country: None (occurrence: None)
  Receive Date: 20070228
  Receipt Date: 20060228
  Transmission Date: 20070707
  Serious: No
  Sender: FDA-Public Use
  Company Number: US-GLAXOSMITHKLINE-A0594393A

PATIENT
  Age: 31 Year
  Sex: Female

DRUGS (2)
  1. VALTREX [Suspect]
     Dosage: 1G PER DAY
     Route: 048
  2. ORAL CONTRACEPTIVE [Concomitant]

REACTIONS (2)
  - ANTINUCLEAR ANTIBODY POSITIVE [None]
  - SALIVARY GLAND ENLARGEMENT [None]
